FAERS Safety Report 9719745 (Version 3)
Quarter: 2013Q4

REPORT INFORMATION
  Report Type: Spontaneous
  Country: JP (occurrence: JP)
  Receive Date: 20131128
  Receipt Date: 20131206
  Transmission Date: 20140711
  Serious: Yes (Other)
  Sender: FDA-Public Use
  Company Number: JP-ASTRAZENECA-2013SE81637

PATIENT
  Age: 12239 Day
  Sex: Male

DRUGS (6)
  1. CRESTOR [Suspect]
     Indication: HYPERCHOLESTEROLAEMIA
     Route: 048
     Dates: start: 20130516, end: 20131102
  2. SEROQUEL [Concomitant]
     Indication: SCHIZOPHRENIA
     Dosage: 100 MG EACH IN MORNING AND EVENING, 200 MG BEFORE BEDTIME, THREE TIMES A DAY
     Route: 048
     Dates: start: 20120926
  3. INVEGA [Concomitant]
     Indication: SCHIZOPHRENIA
     Route: 048
     Dates: start: 20120724
  4. LENDORMIN [Concomitant]
     Indication: INSOMNIA
     Route: 048
     Dates: start: 20120801
  5. DALMATE [Concomitant]
     Indication: INSOMNIA
     Route: 048
  6. ACINON [Concomitant]
     Indication: GASTRIC ULCER
     Route: 048

REACTIONS (3)
  - Limb injury [Unknown]
  - Blood creatine phosphokinase increased [Recovered/Resolved]
  - Liver function test abnormal [Not Recovered/Not Resolved]
